FAERS Safety Report 13326632 (Version 1)
Quarter: 2017Q1

REPORT INFORMATION
  Report Type: Spontaneous
  Country: US (occurrence: US)
  Receive Date: 20170311
  Receipt Date: 20170311
  Transmission Date: 20170428
  Serious: No
  Sender: FDA-Public Use
  Company Number: US-SHIRE-US201703586

PATIENT
  Age: 85 Year
  Sex: Female

DRUGS (1)
  1. XIIDRA [Suspect]
     Active Substance: LIFITEGRAST
     Indication: DRY EYE
     Dosage: UNK, 2X/DAY:BID 1 DROP OF EACH EYE MORNING AND NIGHT 12 HOURS APART
     Route: 047
     Dates: start: 2017

REACTIONS (3)
  - Eye pruritus [Not Recovered/Not Resolved]
  - Instillation site reaction [Recovered/Resolved]
  - Dry eye [Not Recovered/Not Resolved]
